FAERS Safety Report 5303247-5 (Version None)
Quarter: 2007Q2

REPORT INFORMATION
  Report Type: 
  Country: None (occurrence: None)
  Receive Date: 20070420
  Receipt Date: 20070411
  Transmission Date: 20071010
  Serious: Yes (Other)
  Sender: FDA-Public Use
  Company Number: DEWYE298802APR07

PATIENT
  Sex: Male
  Weight: 84 kg

DRUGS (1)
  1. ENBREL [Suspect]
     Indication: DRUG USE FOR UNKNOWN INDICATION
     Route: 058
     Dates: start: 20060901, end: 20070301

REACTIONS (5)
  - BLOOD CREATININE INCREASED [None]
  - CONDITION AGGRAVATED [None]
  - IMMUNOGLOBULINS INCREASED [None]
  - PROTEINURIA [None]
  - RENAL FAILURE [None]
